FAERS Safety Report 14554465 (Version 1)
Quarter: 2018Q1

REPORT INFORMATION
  Report Type: Spontaneous
  Country: GR (occurrence: GR)
  Receive Date: 20180220
  Receipt Date: 20180220
  Transmission Date: 20180509
  Serious: Yes (Other)
  Sender: FDA-Public Use
  Company Number: GR-TEVA-2018-GR-857953

PATIENT
  Age: 62 Year
  Sex: Female

DRUGS (22)
  1. FULVESTRANT. [Suspect]
     Active Substance: FULVESTRANT
     Indication: BREAST CANCER METASTATIC
     Dosage: DOSAGE FORM: UNSPECIFIED
     Route: 065
     Dates: start: 2009
  2. TRASTUZUMAB. [Suspect]
     Active Substance: TRASTUZUMAB
     Indication: BREAST CANCER METASTATIC
     Dosage: DOSAGE FORM: UNSPECIFIED, COMBINATION WITH CAPECITABINE; CYCLICAL
     Route: 065
     Dates: start: 2009
  3. TRASTUZUMAB. [Suspect]
     Active Substance: TRASTUZUMAB
     Dosage: DOSAGE FORM: UNSPECIFIED, COMBINATION WITH GEMCITABINE AND CARBOPLATIN
     Route: 065
     Dates: start: 2009
  4. TRASTUZUMAB. [Suspect]
     Active Substance: TRASTUZUMAB
     Dosage: DOSAGE FORM: UNSPECIFIED, COMBINATION WITH FULVESTRANT; CYCLICAL
     Route: 065
     Dates: start: 2009
  5. EVEROLIMUS. [Suspect]
     Active Substance: EVEROLIMUS
     Indication: BREAST CANCER METASTATIC
     Dosage: DOSAGE FORM: UNSPECIFIED
     Route: 065
     Dates: start: 2009
  6. DOCETAXEL. [Suspect]
     Active Substance: DOCETAXEL
     Indication: BREAST CANCER METASTATIC
     Dosage: DOSAGE FORM: UNSPECIFIED
     Route: 065
     Dates: start: 2009
  7. TRASTUZUMAB. [Suspect]
     Active Substance: TRASTUZUMAB
     Dosage: DOSAGE FORM: UNSPECIFIED, COMBINATION WITH VINORELBINE
     Route: 065
     Dates: start: 2009
  8. ERIBULIN [Suspect]
     Active Substance: ERIBULIN
     Indication: BREAST CANCER METASTATIC
     Dosage: DOSAGE FORM: UNSPECIFIED
     Route: 065
     Dates: start: 2009
  9. GEMCITABINE [Suspect]
     Active Substance: GEMCITABINE\GEMCITABINE HYDROCHLORIDE
     Indication: BREAST CANCER METASTATIC
     Dosage: DOSAGE FORM: UNSPECIFIED
     Route: 065
     Dates: start: 2009
  10. CARBOPLATIN. [Suspect]
     Active Substance: CARBOPLATIN
     Indication: BREAST CANCER METASTATIC
     Dosage: DOSAGE FORM: UNSPECIFIED
     Route: 065
     Dates: start: 2009
  11. TRASTUZUMAB EMTANSINE [Suspect]
     Active Substance: ADO-TRASTUZUMAB EMTANSINE
     Indication: BREAST CANCER METASTATIC
     Dosage: DOSAGE FORM: UNSPECIFIED
     Route: 065
     Dates: start: 2009
  12. DOXORUBICIN HYDROCHLORIDE. [Suspect]
     Active Substance: DOXORUBICIN HYDROCHLORIDE
     Indication: BREAST CANCER METASTATIC
     Route: 065
     Dates: start: 2009
  13. TRASTUZUMAB. [Suspect]
     Active Substance: TRASTUZUMAB
     Dosage: DOSAGE FORM: UNSPECIFIED, COMBINATION WITH ERIBULIN; CYCLICAL
     Route: 065
     Dates: start: 2009
  14. TAMOXIFEN CITRATE. [Suspect]
     Active Substance: TAMOXIFEN CITRATE
     Indication: BREAST CANCER METASTATIC
     Dosage: DOSAGE FORM: UNSPECIFIED
     Route: 065
     Dates: start: 2009
  15. CAPECITABINE. [Suspect]
     Active Substance: CAPECITABINE
     Indication: BREAST CANCER METASTATIC
     Dosage: DOSAGE FORM: UNSPECIFIED, COMBINATION WITH LAPATINIB; CYCLICAL
     Route: 065
     Dates: start: 2009
  16. VINORELBINE [Suspect]
     Active Substance: VINORELBINE\VINORELBINE TARTRATE
     Indication: BREAST CANCER METASTATIC
     Dosage: DOSAGE FORM: UNSPECIFIED
     Route: 065
     Dates: start: 2009
  17. EXEMESTANE. [Suspect]
     Active Substance: EXEMESTANE
     Indication: BREAST CANCER METASTATIC
     Dosage: DOSAGE FORM: UNSPECIFIED
     Route: 065
     Dates: start: 2009
  18. CAPECITABINE. [Suspect]
     Active Substance: CAPECITABINE
     Indication: BREAST CANCER METASTATIC
     Dosage: DOSAGE FORM: UNSPECIFIED, COMBINATION WITH TRASTUZUMAB; CYCLICAL
     Route: 065
     Dates: start: 2009
  19. TRASTUZUMAB. [Suspect]
     Active Substance: TRASTUZUMAB
     Dosage: DOSAGE FORM: UNSPECIFIED, COMBINATION WITH TAMOXIFEN; CYCLICAL
     Route: 065
     Dates: start: 2009
  20. TRASTUZUMAB. [Suspect]
     Active Substance: TRASTUZUMAB
     Dosage: DOSAGE FORM: UNSPECIFIED, COMBINATION WITH EXEMESTANE AND EVEROLIMUS; CYCLICAL
     Route: 065
     Dates: start: 2009
  21. TRASTUZUMAB. [Suspect]
     Active Substance: TRASTUZUMAB
     Dosage: DOSAGE FORM: UNSPECIFIED, COMBINATION WITH LIPOSOMAL DOXORUBICIN HYDROCHLORIDE;
     Route: 065
     Dates: start: 2009
  22. LAPATINIB DITOSYLATE MONOHYDRATE [Suspect]
     Active Substance: LAPATINIB DITOSYLATE
     Indication: BREAST CANCER METASTATIC
     Dosage: DOSAGE FORM: UNSPECIFIED
     Route: 065
     Dates: start: 2009

REACTIONS (1)
  - Neoplasm progression [Unknown]

NARRATIVE: CASE EVENT DATE: 2010
